FAERS Safety Report 11252124 (Version 2)
Quarter: 2015Q3

REPORT INFORMATION
  Report Type: Spontaneous
  Country: US (occurrence: US)
  Receive Date: 20150708
  Receipt Date: 20150903
  Transmission Date: 20151125
  Serious: No
  Sender: FDA-Public Use
  Company Number: US-ELI_LILLY_AND_COMPANY-US201304002626

PATIENT
  Sex: Male

DRUGS (3)
  1. CYMBALTA [Suspect]
     Active Substance: DULOXETINE HYDROCHLORIDE
     Indication: ANXIETY
     Dosage: 30 MG, EACH MORNING
     Dates: start: 20130405, end: 20130408
  2. OXYCODONE [Concomitant]
     Active Substance: OXYCODONE
     Dosage: 30 MG, UNKNOWN
  3. PROZAC [Suspect]
     Active Substance: FLUOXETINE HYDROCHLORIDE

REACTIONS (3)
  - Drug interaction [Unknown]
  - Musculoskeletal pain [Unknown]
  - Drug dependence [Unknown]
